FAERS Safety Report 5031897-2 (Version None)
Quarter: 2006Q2

REPORT INFORMATION
  Report Type: 
  Country: None (occurrence: None)
  Receive Date: 20060621
  Receipt Date: 20060120
  Transmission Date: 20061013
  Serious: No
  Sender: FDA-Public Use
  Company Number: US-AMGEN-US165862

PATIENT
  Sex: Female
  Weight: 123.9 kg

DRUGS (1)
  1. ARANESP [Suspect]
     Indication: DIALYSIS
     Route: 058
     Dates: start: 20050413, end: 20060120

REACTIONS (3)
  - INJECTION SITE REACTION [None]
  - POST INFLAMMATORY PIGMENTATION CHANGE [None]
  - SKIN ULCER [None]
